FAERS Safety Report 11504607 (Version 1)
Quarter: 2015Q3

REPORT INFORMATION
  Report Type: Spontaneous
  Country: US (occurrence: US)
  Receive Date: 20150915
  Receipt Date: 20150915
  Transmission Date: 20151125
  Serious: No
  Sender: FDA-Public Use
  Company Number: US-ROCHE-1001770

PATIENT
  Sex: Female

DRUGS (3)
  1. TELAPREVIR [Concomitant]
     Active Substance: TELAPREVIR
     Route: 065
     Dates: start: 20110902
  2. RIBAVIRIN. [Suspect]
     Active Substance: RIBAVIRIN
     Indication: HEPATITIS C
     Route: 065
     Dates: start: 20110902
  3. PEGASYS [Suspect]
     Active Substance: PEGINTERFERON ALFA-2A
     Indication: HEPATITIS C
     Route: 065
     Dates: start: 20110902

REACTIONS (7)
  - Dysgeusia [Unknown]
  - Bone pain [Unknown]
  - Decreased appetite [Unknown]
  - Nausea [Unknown]
  - Injection site bruising [Unknown]
  - Chills [Unknown]
  - Ear discomfort [Unknown]
